FAERS Safety Report 20956158 (Version 1)
Quarter: 2022Q2

REPORT INFORMATION
  Report Type: Spontaneous
  Country: US (occurrence: None)
  Receive Date: 20220614
  Receipt Date: 20220614
  Transmission Date: 20220721
  Serious: No
  Sender: FDA-Public Use
  Company Number: None

PATIENT
  Age: 80 Year
  Sex: Male

DRUGS (1)
  1. ANDRODERM [Suspect]
     Active Substance: TESTOSTERONE
     Indication: Testicular disorder
     Dates: start: 20220310, end: 20220609

REACTIONS (2)
  - Application site rash [None]
  - Application site inflammation [None]

NARRATIVE: CASE EVENT DATE: 20220609
